FAERS Safety Report 22041971 (Version 1)
Quarter: 2023Q1

REPORT INFORMATION
  Report Type: Spontaneous
  Country: US (occurrence: US)
  Receive Date: 20230227
  Receipt Date: 20230227
  Transmission Date: 20230418
  Serious: No
  Sender: FDA-Public Use
  Company Number: US-PFIZER INC-PV202300035496

PATIENT
  Age: 82 Year
  Sex: Female

DRUGS (36)
  1. CIPROFLOXACIN [Suspect]
     Active Substance: CIPROFLOXACIN
     Dosage: UNK
  2. LIDOCAINE HYDROCHLORIDE [Suspect]
     Active Substance: LIDOCAINE HYDROCHLORIDE
     Dosage: UNK
  3. MAGNESIUM SULFATE [Suspect]
     Active Substance: MAGNESIUM SULFATE
     Dosage: UNK
  4. VERAPAMIL HCL [Suspect]
     Active Substance: VERAPAMIL HYDROCHLORIDE
     Dosage: UNK
  5. LIPITOR [Suspect]
     Active Substance: ATORVASTATIN CALCIUM
     Dosage: UNK
  6. NORVASC [Suspect]
     Active Substance: AMLODIPINE BESYLATE
     Dosage: UNK
  7. HYDRALAZINE [Suspect]
     Active Substance: HYDRALAZINE HYDROCHLORIDE
     Dosage: UNK
  8. ATENOLOL [Suspect]
     Active Substance: ATENOLOL
     Dosage: UNK
  9. AVASTIN [Suspect]
     Active Substance: BEVACIZUMAB
     Dosage: UNK
  10. BARIUM IODIDE [Suspect]
     Active Substance: BARIUM IODIDE
     Dosage: UNK
  11. BENADRYL [Suspect]
     Active Substance: DIPHENHYDRAMINE HYDROCHLORIDE
     Dosage: UNK
  12. CUPRIC SULFATE [Suspect]
     Active Substance: CUPRIC SULFATE
     Dosage: UNK
  13. BENICAR [Suspect]
     Active Substance: OLMESARTAN MEDOXOMIL
     Dosage: UNK
  14. BENTYL [Suspect]
     Active Substance: DICYCLOMINE HYDROCHLORIDE
     Dosage: UNK
  15. BIAXIN [Suspect]
     Active Substance: CLARITHROMYCIN
     Dosage: UNK
  16. DILTIAZEM HYDROCHLORIDE [Suspect]
     Active Substance: DILTIAZEM HYDROCHLORIDE
     Dosage: UNK
  17. CEFZIL [Suspect]
     Active Substance: CEFPROZIL
     Dosage: UNK
  18. CELEXA [Suspect]
     Active Substance: CITALOPRAM HYDROBROMIDE
     Dosage: UNK
  19. CORTIZONE 10 [Suspect]
     Active Substance: HYDROCORTISONE
     Dosage: UNK
  20. COZAAR [Suspect]
     Active Substance: LOSARTAN POTASSIUM
     Dosage: UNK
  21. CRESTOR [Suspect]
     Active Substance: ROSUVASTATIN CALCIUM
     Dosage: UNK
  22. DIPHTHERIA TOXOID NOS [Suspect]
     Active Substance: CORYNEBACTERIUM DIPHTHERIAE TOXOID ANTIGEN (FORMALDEHYDE INACTIVATED)
     Dosage: UNK
  23. PERTUSSIS VACCINE [Suspect]
     Active Substance: PERTUSSIS VACCINE
     Dosage: DOSE NUMBER UNKNOWN, SINGLE
  24. TETANUS TOXOID ADSORBED (VACCINE) [Suspect]
     Active Substance: CLOSTRIDIUM TETANI TOXOID ANTIGEN (FORMALDEHYDE INACTIVATED)
     Dosage: DOSE NUMBER UNKNOWN, SINGLE
  25. FLOXIN [Suspect]
     Active Substance: OFLOXACIN
     Dosage: UNK
  26. INDERAL [Suspect]
     Active Substance: PROPRANOLOL HYDROCHLORIDE
     Dosage: UNK
  27. INFLUENZA VIRUS VACCINE [Suspect]
     Active Substance: INFLUENZA VIRUS VACCINE
     Dosage: DOSE NUMBER UNKNOWN, SINGLE
  28. LISINOPRIL [Suspect]
     Active Substance: LISINOPRIL
     Dosage: UNK
  29. SULAR [Suspect]
     Active Substance: NISOLDIPINE
     Dosage: UNK
  30. SYNTHROID [Suspect]
     Active Substance: LEVOTHYROXINE SODIUM
     Dosage: UNK
  31. TETANUS TOXOIDS [Suspect]
     Active Substance: TETANUS TOXOIDS
     Dosage: UNK
  32. TETRACYCLINE [Suspect]
     Active Substance: TETRACYCLINE
     Dosage: UNK
  33. THORAZINE [Suspect]
     Active Substance: CHLORPROMAZINE
     Dosage: UNK
  34. VALIUM [Suspect]
     Active Substance: DIAZEPAM
     Dosage: UNK
  35. VERSED [Suspect]
     Active Substance: MIDAZOLAM HYDROCHLORIDE
     Dosage: UNK
  36. NOVAFED [Suspect]
     Active Substance: PSEUDOEPHEDRINE HYDROCHLORIDE

REACTIONS (1)
  - Drug hypersensitivity [Unknown]
